FAERS Safety Report 8115473-0 (Version None)
Quarter: 2012Q1

REPORT INFORMATION
  Report Type: 
  Country: None (occurrence: None)
  Receive Date: 20120206
  Receipt Date: 20120131
  Transmission Date: 20120608
  Serious: Yes (Hospitalization, Other)
  Sender: FDA-Public Use
  Company Number: US-SANOFI-AVENTIS-2012SA001919

PATIENT
  Age: 36 Year
  Sex: Female
  Weight: 63.64 kg

DRUGS (3)
  1. WARFARIN SODIUM [Concomitant]
     Indication: THROMBOSIS
     Dates: start: 20110801
  2. APIDRA [Suspect]
     Dosage: CONTINUOUS DOSE VIA INSULIN PUMP, WITH 3 LARGER DOSES TO COVER BLOOD SUGAR AT MEALS
     Route: 058
     Dates: start: 20060101
  3. APIDRA [Suspect]
     Dosage: CONTINUOUS DOSE VIA INSULIN PUMP, WITH 3 LARGER DOSES TO COVER BLOOD SUGAR AT MEALS
     Route: 058
     Dates: start: 20060101

REACTIONS (2)
  - DIABETIC KETOACIDOSIS [None]
  - PRODUCT QUALITY ISSUE [None]
